FAERS Safety Report 8201211-X (Version None)
Quarter: 2012Q1

REPORT INFORMATION
  Report Type: 
  Country: None (occurrence: None)
  Receive Date: 20120312
  Receipt Date: 20120305
  Transmission Date: 20120608
  Serious: Yes (Disabling, Other)
  Sender: FDA-Public Use
  Company Number: PHHY2011US66315

PATIENT
  Sex: Male

DRUGS (3)
  1. PULMOZYME [Concomitant]
  2. TOBI [Suspect]
     Indication: CYSTIC FIBROSIS
     Dosage: 300 MG, QD (28 D)
     Dates: start: 20110601
  3. TOBI [Suspect]
     Dosage: 300 MG, BID Q OTHER 28 DAYS
     Dates: start: 20120201

REACTIONS (5)
  - DYSPHONIA [None]
  - BACK INJURY [None]
  - COUGH [None]
  - ROAD TRAFFIC ACCIDENT [None]
  - PYREXIA [None]
